FAERS Safety Report 26001798 (Version 1)
Quarter: 2025Q4

REPORT INFORMATION
  Report Type: Spontaneous
  Country: EU (occurrence: EU)
  Receive Date: 20251105
  Receipt Date: 20251105
  Transmission Date: 20260117
  Serious: Yes (Life-Threatening, Hospitalization)
  Sender: ELI LILLY AND COMPANY
  Company Number: None

PATIENT
  Age: 70 Year
  Sex: Female
  Weight: 65 kg

DRUGS (13)
  1. ABEMACICLIB [Suspect]
     Active Substance: ABEMACICLIB
     Indication: Breast cancer
     Dosage: 150 MG, BID (1-0-1)
     Route: 048
     Dates: start: 20250918, end: 20251008
  2. FULVESTRANT [Concomitant]
     Active Substance: FULVESTRANT
     Indication: Breast cancer
     Dosage: APPLIED BY NURSE
     Route: 030
     Dates: start: 20250625
  3. SORBIFER [ASCORBIC ACID;FERROUS SULFATE] [Concomitant]
     Indication: Product used for unknown indication
     Dosage: TOTAL DOSE: 380MG; DOSAGE: 1-1-0
  4. ATORVASTATIN CALCIUM [Concomitant]
     Active Substance: ATORVASTATIN CALCIUM
     Indication: Product used for unknown indication
     Dosage: 20 MG, DAILY (0-0-0-1)
     Route: 048
  5. RIVOTRIL [Concomitant]
     Active Substance: CLONAZEPAM
     Indication: Insomnia
     Dosage: 0-0-0-5 GUTTAE WHEN NOT ABLE TO SLEEP
     Route: 048
  6. FENTALIS [FENTANYL] [Concomitant]
     Indication: Product used for unknown indication
     Dosage: 25 UG, EVERY 3 DAYS
     Route: 062
  7. NADROPARIN CALCIUM [Concomitant]
     Active Substance: NADROPARIN CALCIUM
     Indication: Product used for unknown indication
  8. XGEVA [Concomitant]
     Active Substance: DENOSUMAB
     Indication: Product used for unknown indication
     Dosage: 120 MG, MONTHLY (1/M)
  9. CONTROLOC [Concomitant]
     Active Substance: PANTOPRAZOLE SODIUM
     Indication: Product used for unknown indication
     Dosage: 20 MG, DAILY (1-0-0 ON AN EMPTY STOMACH)
     Route: 048
  10. CALCIUM\CHOLECALCIFEROL [Concomitant]
     Active Substance: CALCIUM\CHOLECALCIFEROL
     Indication: Product used for unknown indication
     Dosage: 1 DOSAGE FORM, DAILY (0-0-1)
     Route: 048
  11. DICLOFENAC SODIUM [Concomitant]
     Active Substance: DICLOFENAC SODIUM
     Indication: Pain
     Dosage: 75 MG, BID (1-0-1 WHEN IN PAIN VAS}1 )
     Route: 048
  12. CETALGEN [Concomitant]
     Indication: Pain
     Dosage: 1 DOSAGE FORM, TOTAL DOSE: 700MG; DOSAGE: EVERY 8 HOURS WHEN IN PAIN VAS }=2
     Route: 048
  13. MORPHINE [Concomitant]
     Active Substance: MORPHINE
     Indication: Pain
     Dosage: 10 MG, BID

REACTIONS (3)
  - Dehydration [Recovering/Resolving]
  - Diarrhoea [Recovering/Resolving]
  - Abdominal pain [Recovering/Resolving]

NARRATIVE: CASE EVENT DATE: 20251008
